FAERS Safety Report 10450488 (Version 1)
Quarter: 2014Q3

REPORT INFORMATION
  Report Type: Spontaneous
  Country: US (occurrence: US)
  Receive Date: 20140912
  Receipt Date: 20140912
  Transmission Date: 20150326
  Serious: Yes (Other)
  Sender: FDA-Public Use
  Company Number: US-GLAXOSMITHKLINE-A1088297A

PATIENT
  Age: 55 Year
  Sex: Male

DRUGS (15)
  1. LAMICTAL XR [Suspect]
     Active Substance: LAMOTRIGINE
     Indication: CONVULSION
     Dosage: 500MG AT NIGHT
     Route: 048
     Dates: start: 201108
  2. LISINOPRIL. [Concomitant]
     Active Substance: LISINOPRIL
  3. CYCLOBENZAPRINE [Concomitant]
     Active Substance: CYCLOBENZAPRINE
  4. POTASSIUM CHLORIDE. [Concomitant]
     Active Substance: POTASSIUM CHLORIDE
  5. HYDROCODONE/APAP [Concomitant]
     Active Substance: ACETAMINOPHEN\HYDROCODONE
  6. FUROSEMIDE. [Concomitant]
     Active Substance: FUROSEMIDE
  7. CENTRUM SILVER [Concomitant]
     Active Substance: VITAMINS
  8. FISH OIL [Concomitant]
     Active Substance: FISH OIL
  9. SIMVASTATIN. [Concomitant]
     Active Substance: SIMVASTATIN
  10. LAMOTRIGINE. [Suspect]
     Active Substance: LAMOTRIGINE
     Indication: CONVULSION
     Dosage: 500MG AT NIGHT
     Route: 048
     Dates: start: 20130311, end: 20130903
  11. PANTOPRAZOLE [Concomitant]
     Active Substance: PANTOPRAZOLE SODIUM
  12. METOPROLOL TARTRATE. [Concomitant]
     Active Substance: METOPROLOL TARTRATE
  13. LYRICA [Concomitant]
     Active Substance: PREGABALIN
  14. NAMENDA [Concomitant]
     Active Substance: MEMANTINE HYDROCHLORIDE
  15. EQUATE ASPIRIN [Concomitant]
     Active Substance: ASPIRIN

REACTIONS (5)
  - Disability [Unknown]
  - Memory impairment [Unknown]
  - Convulsion [Unknown]
  - Drug ineffective [Unknown]
  - Dysgraphia [Unknown]

NARRATIVE: CASE EVENT DATE: 20140901
